FAERS Safety Report 5455332-5 (Version None)
Quarter: 2007Q3

REPORT INFORMATION
  Report Type: 
  Country: None (occurrence: None)
  Receive Date: 20070918
  Receipt Date: 20061212
  Transmission Date: 20080115
  Serious: No
  Sender: FDA-Public Use
  Company Number: US-BRISTOL-MYERS SQUIBB COMPANY-13609888

PATIENT

DRUGS (1)
  1. MEGACE [Suspect]

REACTIONS (1)
  - VOMITING [None]
